FAERS Safety Report 15389417 (Version 1)
Quarter: 2018Q3

REPORT INFORMATION
  Report Type: Spontaneous
  Country: FR (occurrence: FR)
  Receive Date: 20180917
  Receipt Date: 20180917
  Transmission Date: 20181010
  Serious: Yes (Hospitalization)
  Sender: FDA-Public Use
  Company Number: FR-TEVA-2018-FR-954841

PATIENT
  Age: 87 Year
  Sex: Female

DRUGS (12)
  1. LAMOTRIGINE. [Suspect]
     Active Substance: LAMOTRIGINE
     Indication: EPILEPSY
     Dosage: 125 MILLIGRAM DAILY; ?50 MG IN THE MORNING + 75 MG IN THE EVENING
     Route: 048
     Dates: start: 20180606, end: 20180806
  2. LETROZOLE. [Concomitant]
     Active Substance: LETROZOLE
     Route: 065
  3. NEBIVOLOL. [Concomitant]
     Active Substance: NEBIVOLOL
     Route: 065
  4. MOLSIDOMINE [Concomitant]
     Active Substance: MOLSIDOMINE
  5. COUMADINE [Suspect]
     Active Substance: WARFARIN SODIUM
     Indication: ATRIAL FIBRILLATION
     Dosage: ACCORDING TO INR
     Route: 048
     Dates: start: 201806
  6. ADENURIC 80 MG, COMPRIM? PELLICUL? [Concomitant]
     Active Substance: FEBUXOSTAT
     Route: 065
  7. RAMIPRIL. [Concomitant]
     Active Substance: RAMIPRIL
  8. ACIDE FOLIQUE [Suspect]
     Active Substance: FOLIC ACID
     Indication: ANAEMIA FOLATE DEFICIENCY
     Dosage: 10 MILLIGRAM DAILY;
     Route: 048
     Dates: start: 20180531, end: 20180813
  9. LASILIX FAIBLE 20 MG, COMPRIM? [Concomitant]
     Active Substance: FUROSEMIDE
     Route: 065
  10. DISCOTRINE 10 MG/24 HEURES, DISPOSITIF TRANSDERMIQUE [Concomitant]
  11. DOLIPRANE [Concomitant]
     Active Substance: ACETAMINOPHEN
  12. VERATRAN 5 MG, COMPRIM? [Concomitant]
     Route: 065

REACTIONS (2)
  - Rash [Recovered/Resolved]
  - Purpura [Recovered/Resolved]

NARRATIVE: CASE EVENT DATE: 201807
